FAERS Safety Report 6169870-3 (Version None)
Quarter: 2009Q2

REPORT INFORMATION
  Report Type: 
  Country: None (occurrence: None)
  Receive Date: 20090428
  Receipt Date: 20090423
  Transmission Date: 20091009
  Serious: Yes (Hospitalization)
  Sender: FDA-Public Use
  Company Number: CA-B.I. PHARMACEUTICALS,INC./RIDGEFIELD-2009-CN-00298CN

PATIENT

DRUGS (4)
  1. ATROVENT [Suspect]
     Indication: ASTHMA
     Route: 055
  2. ALBUTEROL [Concomitant]
     Indication: ASTHMA
     Route: 055
  3. STEROID TREATMENT [Concomitant]
     Indication: ASTHMA
     Route: 048
  4. MN-221 [Concomitant]
     Indication: ASTHMA
     Dosage: ESCALATING DOSES OF 240 TO 1,080 MICROGRAMS
     Route: 042

REACTIONS (1)
  - ASTHMA [None]
